FAERS Safety Report 8883687 (Version 4)
Quarter: 2013Q3

REPORT INFORMATION
  Report Type: Spontaneous
  Country: US (occurrence: US)
  Receive Date: 20121102
  Receipt Date: 20130822
  Transmission Date: 20140515
  Serious: Yes (Hospitalization, Disabling, Other)
  Sender: FDA-Public Use
  Company Number: US-009507513-1210USA010308

PATIENT
  Sex: Female
  Weight: 53.61 kg

DRUGS (7)
  1. FOSAMAX [Suspect]
     Indication: OSTEOPOROSIS
     Dosage: 70 MG, QW
     Route: 048
     Dates: start: 200604, end: 200903
  2. FOSAMAX [Suspect]
     Indication: OSTEOPENIA
  3. ACTONEL [Suspect]
     Indication: OSTEOPOROSIS PROPHYLAXIS
     Dosage: 35 MG, UNK
     Route: 048
     Dates: start: 200202, end: 200604
  4. FOSAMAX [Suspect]
     Indication: OSTEOPOROSIS
     Dosage: 70 MG, QW
     Route: 048
     Dates: start: 200903, end: 201104
  5. FOSAMAX [Suspect]
     Indication: OSTEOPENIA
  6. VITAMINS (UNSPECIFIED) [Concomitant]
     Dosage: UNK
     Dates: end: 201104
  7. ASCORBIC ACID [Concomitant]
     Dosage: UNK

REACTIONS (17)
  - Femur fracture [Not Recovered/Not Resolved]
  - Femur fracture [Not Recovered/Not Resolved]
  - Anaemia postoperative [Unknown]
  - Fall [Unknown]
  - Eye contusion [Unknown]
  - Leukocytosis [Unknown]
  - Intramedullary rod insertion [Unknown]
  - Low turnover osteopathy [Not Recovered/Not Resolved]
  - Type 2 diabetes mellitus [Unknown]
  - Limb injury [Unknown]
  - Dental prosthesis placement [Unknown]
  - Hernia repair [Unknown]
  - Fall [Unknown]
  - Glaucoma [Unknown]
  - Mitral valve prolapse [Unknown]
  - Heart rate irregular [Unknown]
  - Atrophy [Unknown]
